FAERS Safety Report 8846247 (Version 1)
Quarter: 2012Q4

REPORT INFORMATION
  Report Type: 
  Country: GB (occurrence: GB)
  Receive Date: 20121017
  Receipt Date: 20121017
  Transmission Date: 20130627
  Serious: Yes (Hospitalization)
  Sender: FDA-Public Use
  Company Number: PHHY2012GB090015

PATIENT
  Age: 79 Year
  Sex: Male
  Weight: 54 kg

DRUGS (4)
  1. METHOTREXATE [Suspect]
     Indication: HEAD AND NECK CANCER
     Route: 042
     Dates: start: 20120528
  2. GANODERMA LUCIDUM [Concomitant]
     Indication: PRODUCT USED FOR UNKNOWN INDICATION
  3. SCUTELLARIA LATERIFLORA [Concomitant]
     Indication: PRODUCT USED FOR UNKNOWN INDICATION
  4. RADIX SALVIAE MILTIORRHIZAE [Concomitant]
     Indication: PRODUCT USED FOR UNKNOWN INDICATION

REACTIONS (4)
  - Blood calcium increased [Not Recovered/Not Resolved]
  - Blood magnesium increased [Not Recovered/Not Resolved]
  - Blood phosphorus increased [Not Recovered/Not Resolved]
  - Alanine aminotransferase increased [Not Recovered/Not Resolved]
